FAERS Safety Report 8183821-1 (Version None)
Quarter: 2012Q1

REPORT INFORMATION
  Report Type: 
  Country: None (occurrence: None)
  Receive Date: 20120305
  Receipt Date: 20120301
  Transmission Date: 20120608
  Serious: No
  Sender: FDA-Public Use
  Company Number: US-PFIZER INC-2012056901

PATIENT
  Sex: Male
  Weight: 74.83 kg

DRUGS (1)
  1. IBUPROFEN (ADVIL) [Suspect]
     Indication: HEADACHE
     Dosage: 400 MG, UNK
     Route: 048
     Dates: start: 20120301

REACTIONS (3)
  - WRONG DRUG ADMINISTERED [None]
  - PENILE PAIN [None]
  - MICTURITION DISORDER [None]
